FAERS Safety Report 8824677 (Version 2)
Quarter: 2012Q4

REPORT INFORMATION
  Report Type: 
  Country: US (occurrence: US)
  Receive Date: 20121004
  Receipt Date: 20121029
  Transmission Date: 20130627
  Serious: No
  Sender: FDA-Public Use
  Company Number: US-B.I. PHARMACEUTICALS,INC./RIDGEFIELD-2012-BP-23635BP

PATIENT
  Sex: Female
  Weight: 65 kg

DRUGS (10)
  1. SPIRIVA [Suspect]
     Indication: CHRONIC OBSTRUCTIVE PULMONARY DISEASE
     Dosage: 18 mcg
     Route: 055
     Dates: start: 20100303
  2. TIMOLOL [Concomitant]
     Indication: GLAUCOMA
     Dates: start: 1992
  3. DORZOLAMIDE [Concomitant]
     Indication: GLAUCOMA
     Dates: start: 1992
  4. PROZAC [Concomitant]
     Indication: DEPRESSION
     Route: 048
     Dates: start: 2002
  5. PROZAC [Concomitant]
     Indication: OBSESSIVE-COMPULSIVE DISORDER
  6. VALIUM [Concomitant]
     Indication: ANXIETY
     Route: 048
     Dates: start: 2002
  7. TRAVATAN [Concomitant]
     Indication: GLAUCOMA
     Dates: start: 201201
  8. EVISTA [Concomitant]
     Indication: HORMONE THERAPY
     Dosage: 20 mg
     Route: 048
     Dates: start: 2002
  9. SINGULAIR [Concomitant]
     Indication: SINUSITIS
  10. CIPRONEX [Concomitant]
     Indication: SINUSITIS

REACTIONS (1)
  - Tongue disorder [Not Recovered/Not Resolved]
